FAERS Safety Report 25859955 (Version 1)
Quarter: 2025Q3

REPORT INFORMATION
  Report Type: Spontaneous
  Country: US (occurrence: None)
  Receive Date: 20250927
  Receipt Date: 20250927
  Transmission Date: 20251020
  Serious: Yes (Life-Threatening, Hospitalization)
  Sender: FDA-CTU
  Company Number: None

PATIENT
  Age: 71 Year
  Sex: Male
  Weight: 92.7 kg

DRUGS (18)
  1. LUMASON [Suspect]
     Active Substance: SULFUR HEXAFLUORIDE
     Indication: Echocardiogram
     Dates: start: 20250925, end: 20250925
  2. EZETIMIBE [Concomitant]
     Active Substance: EZETIMIBE
  3. LOSARTAN [Concomitant]
     Active Substance: LOSARTAN
  4. Quinine Sulfate 10mg/day [Concomitant]
  5. ROSUVASTATIN [Concomitant]
     Active Substance: ROSUVASTATIN
  6. METOPROLOL [Concomitant]
     Active Substance: METOPROLOL
  7. Tizanidine 2 mg tablet [Concomitant]
  8. Calcium Carbonate [Tums] 750mg tablets [Concomitant]
  9. Cholecalciferol (Vitamin D3) 25 mcg [Concomitant]
  10. Coenzyme Q10 100 mg [Concomitant]
  11. Cyanocobalamin (Vitamin B-12) 1,000 mcg tablet [Concomitant]
  12. Docusate Sodium 100 mg capsule [Concomitant]
  13. Ferrous Gluconate 240 mg (27 mg iron) tablet [Concomitant]
  14. LORATADINE [Concomitant]
     Active Substance: LORATADINE
  15. Lysine 1000 mg tablet [Concomitant]
  16. MINERALS\VITAMINS [Concomitant]
     Active Substance: MINERALS\VITAMINS
  17. PSYLLIUM HUSK [Concomitant]
     Active Substance: PSYLLIUM HUSK
  18. Metamucil] 3.4gram/5.4 gram powder [Concomitant]

REACTIONS (5)
  - Contrast media reaction [None]
  - Aortic valve incompetence [None]
  - Aortic dilatation [None]
  - Tricuspid valve incompetence [None]
  - Procedural complication [None]

NARRATIVE: CASE EVENT DATE: 20250925
